FAERS Safety Report 25938142 (Version 1)
Quarter: 2025Q4

REPORT INFORMATION
  Report Type: Spontaneous
  Country: CN (occurrence: CN)
  Receive Date: 20251018
  Receipt Date: 20251018
  Transmission Date: 20260118
  Serious: Yes (Other)
  Sender: ALKEM
  Company Number: CN-ALKEM LABORATORIES LIMITED-CN-ALKEM-2025-11165

PATIENT
  Age: 46 Day
  Weight: 3.6 kg

DRUGS (1)
  1. VANCOMYCIN [Suspect]
     Active Substance: VANCOMYCIN
     Indication: Anti-infective therapy
     Dosage: 55.56 MILLIGRAM/KILOGRAM, QD (Q6H)
     Route: 042

REACTIONS (2)
  - Hepatotoxicity [Unknown]
  - Off label use [Unknown]
